FAERS Safety Report 17248638 (Version 1)
Quarter: 2020Q1

REPORT INFORMATION
  Report Type: Spontaneous
  Country: US (occurrence: US)
  Receive Date: 20200108
  Receipt Date: 20200108
  Transmission Date: 20200409
  Serious: No
  Sender: FDA-Public Use
  Company Number: US-009507513-2001USA002193

PATIENT
  Sex: Male

DRUGS (1)
  1. SIMVASTATIN TABLETS, USP [Suspect]
     Active Substance: SIMVASTATIN
     Route: 048

REACTIONS (1)
  - Myalgia [Unknown]
